FAERS Safety Report 9850649 (Version 2)
Quarter: 2014Q1

REPORT INFORMATION
  Report Type: Spontaneous
  Country: US (occurrence: US)
  Receive Date: 20140128
  Receipt Date: 20140128
  Transmission Date: 20141002
  Serious: No
  Sender: FDA-Public Use
  Company Number: US-GILEAD-2012-0050263

PATIENT
  Age: 14 Year
  Sex: Female
  Weight: 37.7 kg

DRUGS (9)
  1. CAYSTON [Suspect]
     Indication: PRODUCT USED FOR UNKNOWN INDICATION
     Dosage: UNK
  2. ALBUTEROL                          /00139501/ [Concomitant]
  3. TOBRAMYCIN [Concomitant]
  4. ZENPEP [Concomitant]
  5. LEVALBUTEROL [Concomitant]
  6. PREVACID [Concomitant]
  7. AZITHROMYCIN [Concomitant]
  8. PULMOZYME [Concomitant]
  9. HYPERTONIC SALINE SOLUTION [Concomitant]

REACTIONS (2)
  - Glossodynia [Recovering/Resolving]
  - Oropharyngeal pain [Recovering/Resolving]
